FAERS Safety Report 8997957 (Version 12)
Quarter: 2013Q2

REPORT INFORMATION
  Report Type: Report from Study
  Country: None (occurrence: CA)
  Receive Date: 20130104
  Receipt Date: 20130513
  Transmission Date: 20140414
  Serious: Yes (Hospitalization, Other)
  Sender: FDA-Public Use
  Company Number: CA-ROCHE-1110950

PATIENT
  Age: 77 Year
  Sex: Male
  Weight: 82.7 kg

DRUGS (10)
  1. AVASTIN [Suspect]
     Indication: GLIOBLASTOMA
     Route: 042
     Dates: start: 2012
  2. AVASTIN [Suspect]
     Route: 042
     Dates: start: 2012
  3. AVASTIN [Suspect]
     Route: 042
     Dates: start: 2012
  4. AVASTIN [Suspect]
     Route: 042
     Dates: start: 20120827
  5. AVASTIN [Suspect]
     Route: 042
     Dates: start: 20121105
  6. AVASTIN [Suspect]
     Route: 042
     Dates: start: 20130114
  7. AVODART [Concomitant]
  8. CRESTOR [Concomitant]
  9. NORVASC [Concomitant]
     Dosage: DOSE INCREASED
     Route: 065
  10. NEULASTA [Concomitant]
     Route: 065
     Dates: start: 20130301

REACTIONS (19)
  - Blood pressure increased [Unknown]
  - Herpes zoster [Recovering/Resolving]
  - Pruritus [Recovered/Resolved]
  - Headache [Recovered/Resolved]
  - Blood pressure increased [Recovered/Resolved]
  - Toothache [Recovered/Resolved]
  - Dental caries [Recovered/Resolved]
  - Blood pressure increased [Unknown]
  - Erythema [Recovering/Resolving]
  - Weight decreased [Unknown]
  - Heart rate increased [Recovered/Resolved]
  - Hyperaesthesia [Unknown]
  - Poor venous access [Not Recovered/Not Resolved]
  - General physical health deterioration [Unknown]
  - Fatigue [Not Recovered/Not Resolved]
  - Pallor [Not Recovered/Not Resolved]
  - Catheter site erythema [Unknown]
  - Neoplasm progression [Unknown]
  - General physical health deterioration [Unknown]
